FAERS Safety Report 16077308 (Version 1)
Quarter: 2019Q1

REPORT INFORMATION
  Report Type: Spontaneous
  Country: US (occurrence: US)
  Receive Date: 20190214
  Receipt Date: 20190214
  Transmission Date: 20190418
  Serious: No
  Sender: FDA-Public Use
  Company Number: None

PATIENT
  Age: 67 Year
  Sex: Male

DRUGS (2)
  1. SYNTHROID [Concomitant]
     Active Substance: LEVOTHYROXINE SODIUM
  2. MITOMYCIN INJ 40MG [Suspect]
     Active Substance: MITOMYCIN

REACTIONS (2)
  - Off label use [None]
  - Device use issue [None]

NARRATIVE: CASE EVENT DATE: 20190214
